FAERS Safety Report 5990487-5 (Version None)
Quarter: 2008Q4

REPORT INFORMATION
  Report Type: 
  Country: None (occurrence: None)
  Receive Date: 20081211
  Receipt Date: 20081209
  Transmission Date: 20090506
  Serious: Yes (Other)
  Sender: FDA-Public Use
  Company Number: IE-BRISTOL-MYERS SQUIBB COMPANY-14439467

PATIENT
  Age: 74 Year
  Sex: Female

DRUGS (3)
  1. GLUCOPHAGE [Suspect]
  2. ASPIRIN [Concomitant]
  3. CENTYL [Concomitant]

REACTIONS (1)
  - ANAPHYLACTOID REACTION [None]
